FAERS Safety Report 4287759-1 (Version None)
Quarter: 2004Q1

REPORT INFORMATION
  Report Type: 
  Country: None (occurrence: None)
  Receive Date: 20040209
  Receipt Date: 20030915
  Transmission Date: 20041129
  Serious: No
  Sender: FDA-Public Use
  Company Number: US-GLAXOSMITHKLINE-A0425960A

PATIENT
  Age: 57 Year
  Sex: Female
  Weight: 84.1 kg

DRUGS (5)
  1. PAXIL [Suspect]
     Dosage: 25MG UNKNOWN
     Route: 048
     Dates: start: 20030826, end: 20030915
  2. ATENOLOL [Concomitant]
  3. PLAVIX [Concomitant]
  4. PROZAC [Concomitant]
  5. KLONOPIN [Concomitant]

REACTIONS (1)
  - RASH [None]
